FAERS Safety Report 6026580-0 (Version None)
Quarter: 2008Q4

REPORT INFORMATION
  Report Type: 
  Country: None (occurrence: None)
  Receive Date: 20081231
  Receipt Date: 20081217
  Transmission Date: 20090506
  Serious: Yes (Hospitalization)
  Sender: FDA-Public Use
  Company Number: 2008S1022624

PATIENT
  Sex: Male

DRUGS (11)
  1. FENTANYL TRANSDERMAL SYSTEM [Suspect]
     Indication: PAIN
     Dosage: 75 UG; EVERY HOUR; TRANSDERMAL
     Route: 062
     Dates: start: 20060101, end: 20081001
  2. FENTANYL TRANSDERMAL SYSTEM [Suspect]
     Indication: PAIN
     Dosage: 75 UG; EVERY HOUR; TRANSDERMAL
     Route: 061
     Dates: start: 20060101, end: 20081001
  3. BENAZEPRIL HYDROCHLORIDE [Concomitant]
  4. KEPPRA [Concomitant]
  5. CELEBREX [Concomitant]
  6. RANITIDINE [Concomitant]
  7. PROTONIX [Concomitant]
  8. TRAMADOL HCL [Concomitant]
  9. DIAZEPAM [Concomitant]
  10. TRAZODONE HCL [Concomitant]
  11. DOCUSATE SODIUM [Concomitant]

REACTIONS (10)
  - AMNESIA [None]
  - DRUG EFFECT DECREASED [None]
  - DRUG EFFECT INCREASED [None]
  - GASTRIC HAEMORRHAGE [None]
  - GASTRIC ULCER [None]
  - HAEMATEMESIS [None]
  - INSOMNIA [None]
  - PAIN [None]
  - PRODUCT QUALITY ISSUE [None]
  - RECTAL HAEMORRHAGE [None]
